FAERS Safety Report 23586585 (Version 1)
Quarter: 2024Q1

REPORT INFORMATION
  Report Type: Spontaneous
  Country: CA (occurrence: CA)
  Receive Date: 20240301
  Receipt Date: 20240301
  Transmission Date: 20240410
  Serious: Yes (Other)
  Sender: FDA-Public Use
  Company Number: CA-TEVA-VS-3162552

PATIENT
  Age: 71 Year
  Sex: Male

DRUGS (1)
  1. TERIFLUNOMIDE [Suspect]
     Active Substance: TERIFLUNOMIDE
     Indication: Multiple sclerosis
     Route: 065

REACTIONS (18)
  - Asthenia [Unknown]
  - Asthenia [Unknown]
  - Balance disorder [Unknown]
  - Cataract [Unknown]
  - Cataract [Unknown]
  - Facial pain [Unknown]
  - Facial pain [Unknown]
  - Fall [Unknown]
  - Fall [Unknown]
  - Fatigue [Unknown]
  - Gait disturbance [Unknown]
  - Gait disturbance [Unknown]
  - Heart rate increased [Unknown]
  - Heart rate increased [Unknown]
  - Malaise [Unknown]
  - Product availability issue [Unknown]
  - Product dose omission issue [Unknown]
  - Rash pruritic [Unknown]
